FAERS Safety Report 6909798-1 (Version None)
Quarter: 2010Q3

REPORT INFORMATION
  Report Type: 
  Country: None (occurrence: None)
  Receive Date: 20100806
  Receipt Date: 20100730
  Transmission Date: 20110219
  Serious: No
  Sender: FDA-Public Use
  Company Number: US-BIOGENIDEC-2010BI015788

PATIENT
  Age: 40 Year
  Sex: Female

DRUGS (1)
  1. TYSABRI [Suspect]
     Indication: MULTIPLE SCLEROSIS
     Route: 042
     Dates: start: 20090708

REACTIONS (9)
  - ABDOMINAL PAIN UPPER [None]
  - EPISTAXIS [None]
  - FALL [None]
  - FLUID RETENTION [None]
  - HYPERCHLORHYDRIA [None]
  - HYPERTENSION [None]
  - INJURY [None]
  - SWELLING [None]
  - VOMITING [None]
